FAERS Safety Report 6109072-X (Version None)
Quarter: 2009Q1

REPORT INFORMATION
  Report Type: 
  Country: None (occurrence: None)
  Receive Date: 20090310
  Receipt Date: 20090227
  Transmission Date: 20090719
  Serious: Yes (Hospitalization)
  Sender: FDA-Public Use
  Company Number: CA-ELI_LILLY_AND_COMPANY-CA200903000691

PATIENT
  Age: 66 Year
  Sex: Female

DRUGS (7)
  1. FORTEO [Suspect]
     Indication: OSTEOPOROSIS
     Dosage: 20 UG, DAILY (1/D)
     Route: 058
     Dates: start: 20080715, end: 20090101
  2. FORTEO [Suspect]
     Dosage: 20 UG, DAILY (1/D)
     Route: 058
     Dates: start: 20090101
  3. VITAMIN D [Concomitant]
     Dosage: 10000 IU, WEEKLY (1/W)
  4. PREMARIN [Concomitant]
  5. CALCIUM [Concomitant]
  6. PANTOLOC                           /01263201/ [Concomitant]
  7. DILAUDID [Concomitant]
     Indication: PAIN

REACTIONS (5)
  - BACK PAIN [None]
  - ERYTHEMA [None]
  - MOBILITY DECREASED [None]
  - PRURITUS GENERALISED [None]
  - SPINAL DISORDER [None]
